FAERS Safety Report 8677716 (Version 2)
Quarter: 2012Q4

REPORT INFORMATION
  Report Type: Report from Study
  Country: FR (occurrence: FR)
  Receive Date: 20120723
  Receipt Date: 20120910
  Transmission Date: 20130627
  Serious: Yes (Death, Other)
  Sender: FDA-Public Use
  Company Number: FR-CELGENEUS-056-C5013-12072016

PATIENT
  Age: 67 Year
  Sex: Male

DRUGS (3)
  1. THALIDOMIDE [Suspect]
     Indication: MULTIPLE MYELOMA
     Dosage: 200 Milligram
     Route: 048
     Dates: start: 20091006, end: 20100116
  2. PREDNISONE [Suspect]
     Indication: MULTIPLE MYELOMA
     Dosage: 170 Milligram
     Route: 065
     Dates: start: 20091006, end: 20091120
  3. MELPHALAN [Suspect]
     Indication: MULTIPLE MYELOMA
     Dosage: 20 Milligram
     Route: 065
     Dates: start: 20091006, end: 20091120

REACTIONS (1)
  - Prostate cancer [Fatal]
